FAERS Safety Report 8111384-5 (Version None)
Quarter: 2012Q1

REPORT INFORMATION
  Report Type: 
  Country: None (occurrence: None)
  Receive Date: 20120203
  Receipt Date: 20111025
  Transmission Date: 20120608
  Serious: No
  Sender: FDA-Public Use
  Company Number: US-GLAXOSMITHKLINE-A0950450A

PATIENT
  Sex: Female

DRUGS (6)
  1. BIRTH CONTROL [Concomitant]
     Route: 050
  2. ZONEGRAN [Concomitant]
  3. LAMICTAL [Suspect]
     Indication: BIPOLAR DISORDER
     Dosage: 150MG PER DAY
     Route: 048
  4. KLONOPIN [Concomitant]
  5. LITHIUM CARBONATE [Concomitant]
  6. ABILIFY [Concomitant]

REACTIONS (1)
  - RASH [None]
